FAERS Safety Report 7609810-0 (Version None)
Quarter: 2011Q3

REPORT INFORMATION
  Report Type: 
  Country: None (occurrence: None)
  Receive Date: 20110714
  Receipt Date: 20110614
  Transmission Date: 20111222
  Serious: Yes (Death, Other)
  Sender: FDA-Public Use
  Company Number: DE-US-EMD SERONO, INC.-230002L06DEU

PATIENT
  Age: 61 Year
  Sex: Female

DRUGS (3)
  1. AZATHIOPRINE [Suspect]
     Indication: RELAPSING-REMITTING MULTIPLE SCLEROSIS
     Dates: start: 19940401, end: 19980101
  2. REBIF [Suspect]
     Indication: RELAPSING-REMITTING MULTIPLE SCLEROSIS
     Route: 058
     Dates: start: 19980201, end: 20030101
  3. COP1 [Suspect]
     Indication: RELAPSING-REMITTING MULTIPLE SCLEROSIS
     Dates: start: 20030101, end: 20040101

REACTIONS (9)
  - PANCYTOPENIA [None]
  - ANAEMIA HAEMOLYTIC AUTOIMMUNE [None]
  - SEPSIS [None]
  - ACUTE MYELOID LEUKAEMIA [None]
  - MYELODYSPLASTIC SYNDROME [None]
  - REFRACTORY ANAEMIA WITH AN EXCESS OF BLASTS [None]
  - STEM CELL TRANSPLANT [None]
  - SUBDURAL HAEMATOMA [None]
  - 5Q MINUS SYNDROME [None]
